FAERS Safety Report 9729537 (Version 2)
Quarter: 2014Q1

REPORT INFORMATION
  Report Type: Spontaneous
  Country: US (occurrence: US)
  Receive Date: 20131204
  Receipt Date: 20140310
  Transmission Date: 20141002
  Serious: Yes (Death, Other)
  Sender: FDA-Public Use
  Company Number: US-GILEAD-2013-0089006

PATIENT
  Age: 88 Year
  Sex: Female

DRUGS (11)
  1. LETAIRIS [Suspect]
     Indication: PULMONARY HYPERTENSION
     Dosage: 10 MG, QD
     Route: 048
     Dates: start: 20130926, end: 20131103
  2. LETAIRIS [Suspect]
     Dosage: 5 MG, QD
     Route: 048
     Dates: start: 20130827
  3. LASIX                              /00032601/ [Concomitant]
  4. K-TAB [Concomitant]
  5. COUMADIN                           /00014802/ [Concomitant]
  6. OXYGEN [Concomitant]
  7. ALBUTEROL                          /00139501/ [Concomitant]
  8. DULERA [Concomitant]
  9. BENZONATATE [Concomitant]
  10. FLURBIPROFEN [Concomitant]
  11. CODEINE [Concomitant]

REACTIONS (1)
  - Death [Fatal]
